FAERS Safety Report 8158584-6 (Version None)
Quarter: 2012Q1

REPORT INFORMATION
  Report Type: 
  Country: None (occurrence: None)
  Receive Date: 20120223
  Receipt Date: 20120217
  Transmission Date: 20120608
  Serious: Yes (Hospitalization)
  Sender: FDA-Public Use
  Company Number: FR-BAYER-2012-016851

PATIENT
  Age: 71 Year
  Sex: Female

DRUGS (2)
  1. IRINOTECAN HCL [Suspect]
     Indication: PRODUCT USED FOR UNKNOWN INDICATION
     Dosage: UNK
     Route: 042
     Dates: start: 20111205, end: 20111205
  2. NEXAVAR [Suspect]
     Indication: PRODUCT USED FOR UNKNOWN INDICATION
     Dosage: DAILY DOSE 400 MG
     Route: 048
     Dates: start: 20111205

REACTIONS (5)
  - CHILLS [None]
  - NEUTROPENIA [None]
  - PYREXIA [None]
  - MUCOSAL INFLAMMATION [None]
  - PHARYNGITIS [None]
